FAERS Safety Report 10108611 (Version 1)
Quarter: 2014Q2

REPORT INFORMATION
  Report Type: Report from Study
  Country: JP (occurrence: JP)
  Receive Date: 20140425
  Receipt Date: 20140425
  Transmission Date: 20141212
  Serious: Yes (Hospitalization)
  Sender: FDA-Public Use
  Company Number: JP-ROCHE-GNE302981

PATIENT
  Sex: Male
  Weight: 49.05 kg

DRUGS (12)
  1. RANIBIZUMAB [Suspect]
     Indication: AGE-RELATED MACULAR DEGENERATION
     Dosage: 0.05 ML, UNK
     Route: 050
     Dates: start: 20100120
  2. RANIBIZUMAB [Suspect]
     Dosage: 0.05 ML, UNK
     Route: 050
     Dates: start: 20100421
  3. RANIBIZUMAB [Suspect]
     Dosage: 0.05 ML, UNK
     Route: 050
     Dates: start: 20100526, end: 20100705
  4. ANTIBIOTICS (NOT SPECIFIED) [Concomitant]
     Indication: PROPHYLAXIS
     Dosage: UNK
     Route: 065
  5. VISUDYNE [Concomitant]
     Indication: PRODUCT USED FOR UNKNOWN INDICATION
     Dosage: UNK
     Route: 065
     Dates: start: 20100127
  6. LEVOFLOXACIN [Concomitant]
     Indication: PRODUCT USED FOR UNKNOWN INDICATION
     Dosage: UNK
     Route: 065
     Dates: start: 201001
  7. LEVOFLOXACIN [Concomitant]
     Dosage: UNK
     Route: 065
     Dates: start: 201004
  8. LEVOFLOXACIN [Concomitant]
     Dosage: UNK
     Route: 065
     Dates: start: 20100526
  9. AVASTIN [Concomitant]
     Indication: PRODUCT USED FOR UNKNOWN INDICATION
     Dosage: UNK
     Route: 065
     Dates: start: 200809
  10. TIENAM [Concomitant]
     Indication: PRODUCT USED FOR UNKNOWN INDICATION
  11. BESITRAN [Concomitant]
     Indication: PRODUCT USED FOR UNKNOWN INDICATION
  12. BANAN [Concomitant]
     Indication: PRODUCT USED FOR UNKNOWN INDICATION

REACTIONS (6)
  - Pseudoendophthalmitis [Unknown]
  - Conjunctival hyperaemia [Unknown]
  - Anterior chamber flare [Unknown]
  - Ophthalmological examination abnormal [Unknown]
  - Vision blurred [Unknown]
  - Visual acuity reduced [Unknown]
